FAERS Safety Report 8604764 (Version 3)
Quarter: 2012Q4

REPORT INFORMATION
  Report Type: 
  Country: ES (occurrence: ES)
  Receive Date: 20120608
  Receipt Date: 20121130
  Transmission Date: 20130627
  Serious: Yes (Other)
  Sender: FDA-Public Use
  Company Number: ES-CELGENEUS-144-21660-12053275

PATIENT
  Sex: Male

DRUGS (2)
  1. ABRAXANE [Suspect]
     Indication: PANCREATIC CANCER METASTATIC
     Route: 065
  2. GEMCITABINE [Concomitant]
     Indication: PANCREATIC CANCER METASTATIC
     Route: 041

REACTIONS (4)
  - Jaundice cholestatic [Unknown]
  - Fatigue [Unknown]
  - Alopecia [Unknown]
  - Asthenia [Unknown]
